FAERS Safety Report 12758454 (Version 1)
Quarter: 2016Q3

REPORT INFORMATION
  Report Type: Spontaneous
  Country: US (occurrence: US)
  Receive Date: 20160917
  Receipt Date: 20160917
  Transmission Date: 20161109
  Serious: Yes (Hospitalization)
  Sender: FDA-Public Use
  Company Number: None

PATIENT
  Age: 35 Year
  Sex: Female
  Weight: 67.5 kg

DRUGS (1)
  1. HYOSCYAMINE SULFATE. [Suspect]
     Active Substance: HYOSCYAMINE SULFATE
     Indication: BLADDER SPASM
     Route: 048
     Dates: start: 20160907, end: 20160915

REACTIONS (4)
  - Fall [None]
  - Back injury [None]
  - Dizziness [None]
  - Bladder pain [None]

NARRATIVE: CASE EVENT DATE: 20160910
